FAERS Safety Report 16389460 (Version 1)
Quarter: 2019Q2

REPORT INFORMATION
  Report Type: Spontaneous
  Country: US (occurrence: US)
  Receive Date: 20190604
  Receipt Date: 20190604
  Transmission Date: 20190711
  Serious: No
  Sender: FDA-Public Use
  Company Number: US-ASTRAZENECA-2019SE81081

PATIENT
  Age: 72 Year
  Sex: Female
  Weight: 59.9 kg

DRUGS (4)
  1. TETRACYCLINE [Concomitant]
     Active Substance: TETRACYCLINE
     Indication: INFECTION
     Route: 048
     Dates: start: 1995
  2. TOPIRAMATE. [Concomitant]
     Active Substance: TOPIRAMATE
     Indication: EPILEPSY
     Route: 048
     Dates: start: 1990
  3. MOVANTIK [Suspect]
     Active Substance: NALOXEGOL OXALATE
     Indication: GASTROINTESTINAL HYPOMOTILITY
     Route: 048
     Dates: start: 2014, end: 201901
  4. MOVANTIK [Suspect]
     Active Substance: NALOXEGOL OXALATE
     Indication: GASTROINTESTINAL HYPOMOTILITY
     Route: 048
     Dates: start: 201901, end: 201903

REACTIONS (7)
  - Off label use [Unknown]
  - Dysphagia [Unknown]
  - Intentional product misuse [Unknown]
  - Drug ineffective [Unknown]
  - Gastrointestinal hypomotility [Unknown]
  - Dysuria [Unknown]
  - Constipation [Unknown]

NARRATIVE: CASE EVENT DATE: 2018
